FAERS Safety Report 18428117 (Version 4)
Quarter: 2021Q4

REPORT INFORMATION
  Report Type: Spontaneous
  Country: FR (occurrence: FR)
  Receive Date: 20201026
  Receipt Date: 20211021
  Transmission Date: 20220304
  Serious: Yes (Hospitalization)
  Sender: FDA-Public Use
  Company Number: FR-MERCK KGAA-6035934

PATIENT
  Age: 10 Year
  Sex: Female

DRUGS (6)
  1. IBUPROFEN [Suspect]
     Active Substance: IBUPROFEN
     Indication: Nasopharyngitis
     Dosage: UNK UNK,QD
  2. IBUPROFEN [Suspect]
     Active Substance: IBUPROFEN
     Indication: Pyrexia
     Dosage: MAXIMUM OF 30 MG/KG/DAY
     Route: 048
  3. OXATOMIDE [Concomitant]
     Active Substance: OXATOMIDE
     Dosage: UNK
  4. BETAMETHASONE [Concomitant]
     Active Substance: BETAMETHASONE
     Dosage: UNK
  5. URSODIOL [Concomitant]
     Active Substance: URSODIOL
     Dosage: 25 MILLIGRAM/KILOGRAM THERAPY INFORMATION: 1: THERAPY START DATE TEXT: HOSPITAL DAY 9
  6. RIFAMPIN [Concomitant]
     Active Substance: RIFAMPIN
     Dosage: THERAPY INFORMATION: 1: THERAPY START DATE TEXT: DAY 45

REACTIONS (13)
  - Vanishing bile duct syndrome [Recovered/Resolved]
  - Chromaturia [Recovered/Resolved]
  - Cholestasis [Recovered/Resolved]
  - Cheilitis [Recovered/Resolved]
  - Arthralgia [Recovered/Resolved]
  - Faeces discoloured [Recovered/Resolved]
  - Pharyngeal erythema [Recovered/Resolved]
  - Conjunctivitis [Recovered/Resolved]
  - Pruritus [Recovered/Resolved]
  - Jaundice [Recovered/Resolved]
  - Hepatitis [Recovered/Resolved]
  - Stevens-Johnson syndrome [Recovered/Resolved]
  - Rash maculo-papular [Recovered/Resolved]
